FAERS Safety Report 8326783-6 (Version None)
Quarter: 2012Q2

REPORT INFORMATION
  Report Type: 
  Country: None (occurrence: None)
  Receive Date: 20120501
  Receipt Date: 20120426
  Transmission Date: 20120825
  Serious: Yes (Disabling)
  Sender: FDA-Public Use
  Company Number: PHHY2012GB035648

PATIENT
  Age: 73 Year
  Sex: Female
  Weight: 74 kg

DRUGS (6)
  1. RAMIPRIL [Concomitant]
     Indication: DIABETES MELLITUS
     Dosage: 2.5 MG, QD
     Route: 048
     Dates: start: 20050630
  2. NOVOMIX [Concomitant]
     Indication: DIABETES MELLITUS
     Dates: start: 20060413
  3. BENDROFLUMETHIAZIDE [Concomitant]
     Indication: BLOOD PRESSURE
     Dosage: 2.5 MG, QD
     Route: 048
     Dates: start: 20040607
  4. PREMARIN [Concomitant]
     Indication: HORMONE REPLACEMENT THERAPY
     Dosage: 6.25 MG, DAILY
     Dates: start: 20070511
  5. SIMVASTATIN [Concomitant]
     Indication: DIABETES MELLITUS
     Dosage: 40 MG, QD
     Route: 048
     Dates: start: 20070219
  6. DONEPEZIL HCL [Suspect]
     Indication: DEMENTIA
     Dosage: 5 MG, DAILY
     Route: 048
     Dates: start: 20111028

REACTIONS (1)
  - HYPERSEXUALITY [None]
